FAERS Safety Report 18948545 (Version 1)
Quarter: 2021Q1

REPORT INFORMATION
  Report Type: Spontaneous
  Country: US (occurrence: US)
  Receive Date: 20210226
  Receipt Date: 20210226
  Transmission Date: 20210420
  Serious: No
  Sender: FDA-Public Use
  Company Number: US-ROCHE-2579613

PATIENT
  Age: 48 Year
  Sex: Female
  Weight: 74.46 kg

DRUGS (6)
  1. MONTELUKAST [Concomitant]
     Active Substance: MONTELUKAST SODIUM
     Dosage: AT BEDTIME
     Dates: start: 20190411
  2. HYDROXYZINE [Concomitant]
     Active Substance: HYDROXYZINE HYDROCHLORIDE
  3. XOLAIR [Suspect]
     Active Substance: OMALIZUMAB
     Indication: URTICARIA CHRONIC
     Dosage: 150 MG IN EACH ARM
     Route: 058
     Dates: start: 20190508
  4. FAMODITINE [Concomitant]
     Active Substance: FAMOTIDINE
  5. LORAZEPAM. [Concomitant]
     Active Substance: LORAZEPAM
  6. DOXEPIN [Concomitant]
     Active Substance: DOXEPIN

REACTIONS (3)
  - Nasopharyngitis [Unknown]
  - Malaise [Unknown]
  - Bronchitis [Unknown]

NARRATIVE: CASE EVENT DATE: 201911
